FAERS Safety Report 7208086-6 (Version None)
Quarter: 2011Q1

REPORT INFORMATION
  Report Type: 
  Country: None (occurrence: None)
  Receive Date: 20110104
  Receipt Date: 20101231
  Transmission Date: 20110831
  Serious: No
  Sender: FDA-Public Use
  Company Number: US-PFIZER INC-2010146785

PATIENT
  Sex: Female

DRUGS (2)
  1. PREMARIN [Concomitant]
  2. PREMPRO [Suspect]
     Dosage: 0.3 MG, UNK

REACTIONS (1)
  - SMEAR CERVIX ABNORMAL [None]
